FAERS Safety Report 17365874 (Version 1)
Quarter: 2020Q1

REPORT INFORMATION
  Report Type: Report from Study
  Country: PL (occurrence: PL)
  Receive Date: 20200204
  Receipt Date: 20200204
  Transmission Date: 20200409
  Serious: Yes (Other)
  Sender: FDA-Public Use
  Company Number: NVSC2020PL005091

PATIENT
  Age: 56 Year
  Sex: Male
  Weight: 103 kg

DRUGS (11)
  1. FUROSEMIDE. [Concomitant]
     Active Substance: FUROSEMIDE
     Dosage: 1 DF EVERY THREE DAYS
     Route: 065
  2. GOPTEN [Concomitant]
     Active Substance: TRANDOLAPRIL
     Dosage: 1 MG, QD
     Route: 065
  3. METFORMAX [Concomitant]
     Active Substance: METFORMIN HYDROCHLORIDE
     Indication: PRODUCT USED FOR UNKNOWN INDICATION
     Dosage: 1X1 TAB. BEFORE SLEEP
     Route: 065
  4. SPRYCEL [Concomitant]
     Active Substance: DASATINIB
     Indication: PRODUCT USED FOR UNKNOWN INDICATION
     Dosage: UNK
     Route: 065
  5. SPIRONOL [Concomitant]
     Active Substance: SPIRONOLACTONE
     Dosage: 50 MG X 2
     Route: 065
  6. FUROSEMIDE. [Concomitant]
     Active Substance: FUROSEMIDE
     Indication: PRODUCT USED FOR UNKNOWN INDICATION
     Dosage: 40 MG (DEPENDING ON THE DEGREE OF HYDRATION) 1X1 TAB IN MORNING
     Route: 065
  7. TASIGNA [Suspect]
     Active Substance: NILOTINIB
     Indication: CHRONIC MYELOID LEUKAEMIA
     Dosage: 4 DF (2 X 2 CAPSULES)
     Route: 048
     Dates: start: 20170124, end: 201912
  8. TRIPLIXAM [Concomitant]
     Active Substance: AMLODIPINE BESYLATE\INDAPAMIDE\PERINDOPRIL ARGININE
     Indication: PRODUCT USED FOR UNKNOWN INDICATION
     Dosage: IN MORNING
     Route: 065
  9. GOPTEN [Concomitant]
     Active Substance: TRANDOLAPRIL
     Indication: PRODUCT USED FOR UNKNOWN INDICATION
     Dosage: 0.5 MG (1X1 TABLET)
     Route: 065
  10. SPIRONOL [Concomitant]
     Active Substance: SPIRONOLACTONE
     Indication: PRODUCT USED FOR UNKNOWN INDICATION
     Dosage: 50 MG X1
     Route: 065
  11. KALIPOZ-PROLONGATUM [Concomitant]
     Active Substance: POTASSIUM CHLORIDE
     Indication: PRODUCT USED FOR UNKNOWN INDICATION
     Dosage: UNK
     Route: 065

REACTIONS (13)
  - Blood pressure increased [Unknown]
  - Dyspnoea [Unknown]
  - Neutrophil count increased [Unknown]
  - Sensation of foreign body [Unknown]
  - Upper respiratory tract infection [Unknown]
  - Chest discomfort [Unknown]
  - Hypoaesthesia [Unknown]
  - Exercise tolerance decreased [Unknown]
  - Pulmonary hypertension [Unknown]
  - Chest pain [Unknown]
  - Basophil count increased [Unknown]
  - Carbohydrate metabolism disorder [Unknown]
  - Lymphocyte count decreased [Unknown]

NARRATIVE: CASE EVENT DATE: 201912
